FAERS Safety Report 13402509 (Version 1)
Quarter: 2017Q2

REPORT INFORMATION
  Report Type: Spontaneous
  Country: HU (occurrence: HU)
  Receive Date: 20170404
  Receipt Date: 20170404
  Transmission Date: 20170830
  Serious: Yes (Other)
  Sender: FDA-Public Use
  Company Number: HU-SANTEN-201700528

PATIENT
  Age: 45 Year
  Sex: Female

DRUGS (2)
  1. OFTAQUIX [Suspect]
     Active Substance: LEVOFLOXACIN
     Dosage: 2 GTT
     Route: 047
     Dates: start: 20170320, end: 20170320
  2. OFTAQUIX [Suspect]
     Active Substance: LEVOFLOXACIN
     Indication: EYE IRRITATION
     Dosage: 20 DROPS DURING 12 HOURS
     Route: 047
     Dates: start: 20170213, end: 20170214

REACTIONS (7)
  - Off label use [Unknown]
  - Overdose [Unknown]
  - Visual acuity reduced [Recovered/Resolved]
  - Platelet aggregation abnormal [Unknown]
  - Visual impairment [Recovered/Resolved]
  - Expired product administered [Unknown]
  - Lacunar infarction [Unknown]

NARRATIVE: CASE EVENT DATE: 20170213
